FAERS Safety Report 9913420 (Version 4)
Quarter: 2015Q1

REPORT INFORMATION
  Report Type: Report from Study
  Country: JP (occurrence: JP)
  Receive Date: 20140220
  Receipt Date: 20150105
  Transmission Date: 20150721
  Serious: Yes (Hospitalization, Other)
  Sender: FDA-Public Use
  Company Number: JP-ASTELLAS-2014US001686

PATIENT
  Age: 61 Year
  Sex: Male
  Weight: 58 kg

DRUGS (32)
  1. VANCOMYCIN HYDROCHLORIDE. [Suspect]
     Active Substance: VANCOMYCIN HYDROCHLORIDE
     Dosage: 0.5 G, TWICE DAILY
     Route: 041
     Dates: start: 20121029, end: 20121031
  2. ACTIOS [Concomitant]
     Indication: PRODUCT USED FOR UNKNOWN INDICATION
     Dosage: UNK, UNKNOWN FREQ.
     Route: 065
  3. HANP [Concomitant]
     Active Substance: CARPERITIDE
     Indication: PLEURAL EFFUSION
  4. DALTEPARIN SODIUM [Concomitant]
     Active Substance: DALTEPARIN SODIUM
     Indication: PRODUCT USED FOR UNKNOWN INDICATION
     Dosage: UNK, UNKNOWN FREQ.
     Route: 065
  5. FINIBAX [Concomitant]
     Active Substance: DORIPENEM MONOHYDRATE
     Indication: PRODUCT USED FOR UNKNOWN INDICATION
     Dosage: UNK, UNKNOWN FREQ.
     Route: 065
     Dates: start: 20121024, end: 20121107
  6. VENILON [Concomitant]
     Active Substance: HUMAN IMMUNOGLOBULIN G
     Indication: PRODUCT USED FOR UNKNOWN INDICATION
     Dosage: UNK UNK, UNKNOWN FREQ.
     Route: 065
     Dates: start: 20121106, end: 20121107
  7. VANCOMYCIN HYDROCHLORIDE. [Suspect]
     Active Substance: VANCOMYCIN HYDROCHLORIDE
     Dosage: 0.75 G, ONCE DAILY
     Route: 041
     Dates: start: 20121031, end: 20121105
  8. POLARAMINE [Concomitant]
     Active Substance: DEXCHLORPHENIRAMINE MALEATE
     Indication: PRODUCT USED FOR UNKNOWN INDICATION
     Dosage: UNK, UNKNOWN FREQ.
     Route: 065
  9. FENTANYL CITRATE. [Concomitant]
     Active Substance: FENTANYL CITRATE
     Indication: PRODUCT USED FOR UNKNOWN INDICATION
     Dosage: UNK, UNKNOWN FREQ.
     Route: 065
  10. OMEPRAZOLE SODIUM [Concomitant]
     Active Substance: OMEPRAZOLE SODIUM
     Indication: PRODUCT USED FOR UNKNOWN INDICATION
     Dosage: UNK, UNKNOWN FREQ.
     Route: 065
  11. FLUCONAZOLE. [Concomitant]
     Active Substance: FLUCONAZOLE
     Indication: PRODUCT USED FOR UNKNOWN INDICATION
     Dosage: UNK, UNKNOWN FREQ.
     Route: 065
     Dates: start: 20121004, end: 20121024
  12. AMPHOTERICIN B, LIPOSOME [Suspect]
     Active Substance: AMPHOTERICIN B
     Indication: FEBRILE NEUTROPENIA
     Route: 041
     Dates: start: 20121024, end: 20121106
  13. PROGRAF [Suspect]
     Active Substance: TACROLIMUS\TACROLIMUS ANHYDROUS
     Indication: PRODUCT USED FOR UNKNOWN INDICATION
     Dosage: UNK, UNKNOWN FREQ.
     Route: 041
     Dates: end: 20121029
  14. PLATELET CONCENTRATE, LEUKOCYTES REDUCED [Concomitant]
     Indication: PRODUCT USED FOR UNKNOWN INDICATION
     Dosage: UNK, UNKNOWN FREQ.
     Route: 065
  15. FOSCAVIR [Concomitant]
     Active Substance: FOSCARNET SODIUM
     Indication: ENCEPHALITIS VIRAL
     Dosage: UNK, UNKNOWN FREQ.
     Route: 065
     Dates: start: 20121105
  16. FUNGUARD [Concomitant]
     Active Substance: MICAFUNGIN SODIUM
     Indication: PRODUCT USED FOR UNKNOWN INDICATION
     Dosage: UNK, UNKNOWN FREQ.
     Route: 065
     Dates: start: 20121011, end: 20121024
  17. HYDROCORTONE [Concomitant]
     Active Substance: HYDROCORTISONE
     Indication: ENGRAFTMENT SYNDROME
     Dosage: UNK, UNKNOWN FREQ.
     Route: 065
     Dates: start: 20121102
  18. METHOTREXATE [Concomitant]
     Active Substance: METHOTREXATE
     Indication: PRODUCT USED FOR UNKNOWN INDICATION
     Dosage: UNK, UNKNOWN FREQ.
     Route: 065
     Dates: start: 20121017, end: 20121028
  19. REMODULIN [Concomitant]
     Active Substance: TREPROSTINIL
     Indication: FIBRIN DEGRADATION PRODUCTS INCREASED
     Dosage: UNK, UNKNOWN FREQ.
     Route: 065
     Dates: start: 20121024
  20. BLOOD TRANSFUSION, AUXILIARY PRODUCTS [Concomitant]
     Active Substance: WHOLE BLOOD
     Indication: PRODUCT USED FOR UNKNOWN INDICATION
     Dosage: UNK, UNKNOWN FREQ.
     Route: 065
     Dates: start: 20121025
  21. PROGRAF [Suspect]
     Active Substance: TACROLIMUS\TACROLIMUS ANHYDROUS
     Route: 041
     Dates: start: 20121029
  22. VANCOMYCIN HYDROCHLORIDE. [Suspect]
     Active Substance: VANCOMYCIN HYDROCHLORIDE
     Indication: PRODUCT USED FOR UNKNOWN INDICATION
     Dosage: 0.75 G, TWICE DAILY
     Route: 041
     Dates: start: 20121027, end: 20121028
  23. NOVOLIN R [Concomitant]
     Active Substance: INSULIN HUMAN
     Indication: HYPERGLYCAEMIA
     Dosage: UNK, UNKNOWN FREQ.
     Route: 065
     Dates: start: 20121024
  24. ALBUMIN [Concomitant]
     Active Substance: ALBUMIN (HUMAN)
     Dosage: UNK, UNKNOWN FREQ.
     Route: 065
     Dates: start: 20121128
  25. RED CELLS CONCENTRATES-LEUKOCYTES REDUCED [Concomitant]
     Indication: PRODUCT USED FOR UNKNOWN INDICATION
     Dosage: UNK, UNKNOWN FREQ.
     Route: 065
  26. NEUART [Concomitant]
     Indication: PRODUCT USED FOR UNKNOWN INDICATION
     Dosage: UNK, UNKNOWN FREQ.
     Route: 065
  27. PREDNISOLONE. [Concomitant]
     Active Substance: PREDNISOLONE
     Indication: PRODUCT USED FOR UNKNOWN INDICATION
     Dosage: UNK, UNKNOWN FREQ.
     Route: 065
  28. ALBUMIN [Concomitant]
     Active Substance: ALBUMIN (HUMAN)
     Indication: PRODUCT USED FOR UNKNOWN INDICATION
     Dosage: UNK, UNKNOWN FREQ.
     Route: 065
     Dates: start: 20121028
  29. LASIX [Concomitant]
     Active Substance: FUROSEMIDE
     Indication: DIURETIC THERAPY
     Dosage: UNK, UNKNOWN FREQ.
     Route: 065
     Dates: start: 20121028
  30. HANP [Concomitant]
     Active Substance: CARPERITIDE
     Indication: PRODUCT USED FOR UNKNOWN INDICATION
     Dosage: UNK UNK, UNKNOWN FREQ.
     Route: 065
     Dates: start: 20121028
  31. GRAN [Concomitant]
     Active Substance: FILGRASTIM
     Indication: PRODUCT USED FOR UNKNOWN INDICATION
     Dosage: UNK, UNKNOWN FREQ.
     Route: 065
     Dates: start: 20121021, end: 20121102
  32. BAKTAR [Concomitant]
     Active Substance: SULFAMETHOXAZOLE\TRIMETHOPRIM
     Indication: PRODUCT USED FOR UNKNOWN INDICATION
     Route: 065
     Dates: start: 20121004, end: 20121014

REACTIONS (10)
  - Anaemia [Not Recovered/Not Resolved]
  - Pleural effusion [Recovered/Resolved]
  - Weight increased [Recovered/Resolved]
  - Fibrin degradation products increased [Recovered/Resolved]
  - Depressed level of consciousness [Recovering/Resolving]
  - Renal impairment [Not Recovered/Not Resolved]
  - Hepatic function abnormal [Recovered/Resolved]
  - Hyperglycaemia [Recovering/Resolving]
  - Engraftment syndrome [Recovered/Resolved]
  - Dysaesthesia [Recovering/Resolving]

NARRATIVE: CASE EVENT DATE: 20121024
